FAERS Safety Report 17318115 (Version 12)
Quarter: 2023Q1

REPORT INFORMATION
  Report Type: Report from Study
  Country: US (occurrence: US)
  Receive Date: 20200124
  Receipt Date: 20230125
  Transmission Date: 20230418
  Serious: Yes (Hospitalization, Other)
  Sender: FDA-Public Use
  Company Number: None

PATIENT
  Sex: Female

DRUGS (1)
  1. COSENTYX [Suspect]
     Active Substance: SECUKINUMAB
     Indication: Product used for unknown indication
     Dosage: UNKNOWN
     Route: 065

REACTIONS (8)
  - Blood glucose decreased [Unknown]
  - Diabetes mellitus [Unknown]
  - Mobility decreased [Unknown]
  - Peripheral swelling [Unknown]
  - Bone pain [Unknown]
  - Pain [Unknown]
  - Psoriasis [Unknown]
  - Rash [Unknown]
